FAERS Safety Report 9343621 (Version 2)
Quarter: 2013Q4

REPORT INFORMATION
  Report Type: Spontaneous
  Country: GB (occurrence: None)
  Receive Date: 20130610
  Receipt Date: 20131113
  Transmission Date: 20140711
  Serious: Yes (Disabling)
  Sender: FDA-Public Use
  Company Number: AUR-APL-2013-04504

PATIENT
  Age: 40 Year
  Sex: Female
  Weight: 88 kg

DRUGS (5)
  1. MIRTAZAPINE (MIRTAZAPINE) [Suspect]
     Indication: DEPRESSION
     Route: 048
     Dates: start: 20130429, end: 20130502
  2. CO-CODAMOL (PANADEINE CO) [Concomitant]
  3. LAMICTAL (LAMOTRIGINE) TABLET [Concomitant]
  4. RIZATRIPTAN (RIZATRIPTAN) [Concomitant]
  5. ZOLPIDEM (ZOLPIDEM) [Concomitant]

REACTIONS (4)
  - Oedema peripheral [None]
  - Oedema peripheral [None]
  - Swelling face [None]
  - Oedema [None]
